APPROVED DRUG PRODUCT: FUROSEMIDE
Active Ingredient: FUROSEMIDE
Strength: 80MG
Dosage Form/Route: TABLET;ORAL
Application: A070082 | Product #001
Applicant: PHARMOBEDIENT CONSULTING LLC
Approved: Oct 29, 1986 | RLD: No | RS: No | Type: DISCN